FAERS Safety Report 5573153-X (Version None)
Quarter: 2007Q4

REPORT INFORMATION
  Report Type: 
  Country: None (occurrence: None)
  Receive Date: 20071220
  Receipt Date: 20071213
  Transmission Date: 20080405
  Serious: Yes (Hospitalization)
  Sender: FDA-Public Use
  Company Number: 2007-05764

PATIENT
  Age: 42 Year
  Sex: Female

DRUGS (1)
  1. CLINDAMYCIN HYDROCHLORIDE [Suspect]
     Indication: GINGIVAL INFECTION
     Dosage: 150 MG, QID, ORAL
     Route: 048

REACTIONS (2)
  - HEPATITIS CHOLESTATIC [None]
  - HEPATOTOXICITY [None]
